FAERS Safety Report 7694152-8 (Version None)
Quarter: 2011Q3

REPORT INFORMATION
  Report Type: 
  Country: None (occurrence: None)
  Receive Date: 20110819
  Receipt Date: 20110809
  Transmission Date: 20111222
  Serious: Yes (Hospitalization)
  Sender: FDA-Public Use
  Company Number: DE-MILLENNIUM PHARMACEUTICALS, INC.-2011-03052

PATIENT

DRUGS (5)
  1. EPOETIN [Concomitant]
     Dosage: UNK
     Dates: start: 20110610, end: 20110610
  2. VELCADE [Suspect]
     Dosage: UNK
     Dates: start: 20110609, end: 20110617
  3. VELCADE [Suspect]
     Indication: MULTIPLE MYELOMA
     Dosage: UNK
     Dates: start: 20110516, end: 20110526
  4. DEXAMETHASONE [Concomitant]
     Indication: MULTIPLE MYELOMA
     Dosage: UNK
     Dates: start: 20110516, end: 20110617
  5. PAMIDRONATE DISODIUM [Concomitant]
     Dosage: UNK
     Dates: start: 20100602

REACTIONS (1)
  - URINARY BLADDER HAEMORRHAGE [None]
